FAERS Safety Report 14677132 (Version 1)
Quarter: 2018Q1

REPORT INFORMATION
  Report Type: Spontaneous
  Country: US (occurrence: US)
  Receive Date: 20180323
  Receipt Date: 20180323
  Transmission Date: 20180509
  Serious: Yes (Hospitalization)
  Sender: FDA-Public Use
  Company Number: None

PATIENT
  Age: 67 Year
  Sex: Male

DRUGS (2)
  1. CELECOXIB. [Suspect]
     Active Substance: CELECOXIB
     Indication: URTICARIA
     Route: 048
     Dates: start: 20170901, end: 20170907
  2. CELECOXIB. [Suspect]
     Active Substance: CELECOXIB
     Indication: DRUG ERUPTION
     Route: 048
     Dates: start: 20170901, end: 20170907

REACTIONS (5)
  - Urticaria [None]
  - Drug ineffective [None]
  - Pruritus [None]
  - Swelling face [None]
  - Rash [None]

NARRATIVE: CASE EVENT DATE: 20170914
